FAERS Safety Report 8602406-3 (Version None)
Quarter: 2012Q3

REPORT INFORMATION
  Report Type: 
  Country: None (occurrence: None)
  Receive Date: 20120817
  Receipt Date: 20120813
  Transmission Date: 20120928
  Serious: Yes (Disabling, Other)
  Sender: FDA-Public Use
  Company Number: US-PFIZER INC-2012190729

PATIENT
  Age: 44 Year
  Sex: Female
  Weight: 52 kg

DRUGS (3)
  1. XANAX [Concomitant]
     Indication: ANXIETY
     Dosage: UNK
  2. COUMADIN [Concomitant]
     Indication: FACTOR V DEFICIENCY
     Dosage: UNK
  3. LYRICA [Suspect]
     Dosage: UNK
     Dates: end: 20100801

REACTIONS (4)
  - CEREBROVASCULAR ACCIDENT [None]
  - DRUG EFFECT DECREASED [None]
  - PLEURISY [None]
  - PAIN [None]
